FAERS Safety Report 24982514 (Version 3)
Quarter: 2025Q1

REPORT INFORMATION
  Report Type: Spontaneous
  Country: US (occurrence: US)
  Receive Date: 20250218
  Receipt Date: 20250318
  Transmission Date: 20250409
  Serious: No
  Sender: PFIZER
  Company Number: US-PFIZER INC-PV202500016680

PATIENT
  Age: 82 Year
  Sex: Female

DRUGS (1)
  1. TUKYSA [Suspect]
     Active Substance: TUCATINIB
     Dates: end: 20250227

REACTIONS (2)
  - Cerebral disorder [Unknown]
  - Emotional disorder [Not Recovered/Not Resolved]
